FAERS Safety Report 24160921 (Version 2)
Quarter: 2024Q4

REPORT INFORMATION
  Report Type: Report from Study
  Country: CA (occurrence: CA)
  Receive Date: 20240801
  Receipt Date: 20241015
  Transmission Date: 20250115
  Serious: Yes (Other)
  Sender: ABBVIE
  Company Number: CA-ABBVIE-5860792

PATIENT
  Age: 65 Year
  Sex: Female
  Weight: 63.6 kg

DRUGS (24)
  1. UPADACITINIB [Suspect]
     Active Substance: UPADACITINIB
     Indication: Dermatitis atopic
     Route: 048
     Dates: start: 20220725, end: 20220823
  2. UPADACITINIB [Suspect]
     Active Substance: UPADACITINIB
     Indication: Dermatitis atopic
     Route: 048
     Dates: start: 20220824, end: 20220911
  3. UPADACITINIB [Suspect]
     Active Substance: UPADACITINIB
     Indication: Dermatitis atopic
     Route: 048
     Dates: start: 20220914, end: 20230112
  4. UPADACITINIB [Suspect]
     Active Substance: UPADACITINIB
     Indication: Dermatitis atopic
     Route: 048
     Dates: start: 20230127
  5. ACETAMINOPHEN [Concomitant]
     Active Substance: ACETAMINOPHEN
     Indication: Neck pain
     Dosage: TIME INTERVAL: AS NECESSARY
     Route: 048
     Dates: start: 1980
  6. SUMATRIPTAN [Concomitant]
     Active Substance: SUMATRIPTAN
     Indication: Migraine
     Dosage: TIME INTERVAL: AS NECESSARY
     Route: 048
     Dates: start: 1989
  7. PROPRANOLOL [Concomitant]
     Active Substance: PROPRANOLOL HYDROCHLORIDE
     Indication: Migraine
     Route: 048
     Dates: start: 2007
  8. ESTRADIOL [Concomitant]
     Active Substance: ESTRADIOL
     Indication: Menopause
     Route: 048
     Dates: start: 2008
  9. AMLODIPINE [Concomitant]
     Active Substance: AMLODIPINE BESYLATE
     Indication: Hypertension
     Route: 048
     Dates: start: 2017
  10. NUCALA [Concomitant]
     Active Substance: MEPOLIZUMAB
     Indication: Asthma
     Route: 058
     Dates: start: 202001
  11. ZENHALE [Concomitant]
     Active Substance: FORMOTEROL FUMARATE\MOMETASONE FUROATE
     Indication: Asthma
     Dosage: 200/5 MCG?DOSE: 2 INHALATION
     Route: 055
     Dates: start: 202001
  12. SPIRIVA RESPIMAT [Concomitant]
     Active Substance: TIOTROPIUM BROMIDE
     Indication: Asthma
     Dosage: DOSE: 2 APPLICATION
     Route: 055
     Dates: start: 202001
  13. SINGULAIR [Concomitant]
     Active Substance: MONTELUKAST SODIUM
     Indication: Asthma
     Route: 048
     Dates: start: 202001
  14. FLONASE [Concomitant]
     Active Substance: FLUTICASONE PROPIONATE
     Indication: Rhinitis allergic
     Dosage: TIME INTERVAL: AS NECESSARY: 50 MCG?DOSE: 2 (1 PER NOSTRIL) SPRAY
     Route: 045
     Dates: start: 202001
  15. MOMETASONE [Concomitant]
     Active Substance: MOMETASONE
     Indication: Rhinitis
     Dosage: TIME INTERVAL: AS NECESSARY: 50 MCG?DOSE: 4 SPRAY
     Route: 045
     Dates: start: 20210111
  16. SYSTANE (HYPROMELLOSE 2910 (4000 MPA.S)) [Concomitant]
     Active Substance: HYPROMELLOSE 2910 (4000 MPA.S)
     Indication: Conjunctival irritation
     Dosage: TIME INTERVAL: AS NECESSARY: DOSE: 4 DROPS
     Route: 047
     Dates: start: 202111
  17. SYNTHROID [Concomitant]
     Active Substance: LEVOTHYROXINE SODIUM
     Indication: Hypothyroidism
     Route: 048
     Dates: start: 20211125
  18. OLOPATADINE [Concomitant]
     Active Substance: OLOPATADINE
     Indication: Rhinitis
     Dosage: TIME INTERVAL: AS NECESSARY: 0.2 %?DOSE: 2 DROP
     Route: 047
     Dates: start: 20220210
  19. ATIVAN [Concomitant]
     Active Substance: LORAZEPAM
     Indication: Insomnia
     Dosage: TIME INTERVAL: AS NECESSARY
     Route: 048
     Dates: start: 20231110
  20. CHOLECALCIFEROL [Concomitant]
     Active Substance: CHOLECALCIFEROL
     Indication: Osteoporosis
     Route: 048
     Dates: start: 20231110
  21. DESONIDE [Concomitant]
     Active Substance: DESONIDE
     Indication: Dermatitis atopic
     Dosage: TIME INTERVAL: AS NECESSARY: 0.5%?DOSE: 1 APPLICATION
     Route: 061
     Dates: start: 202402
  22. MCAL [Concomitant]
     Indication: Osteoporosis
     Route: 048
     Dates: start: 202402
  23. PANTOPRAZOLE [Concomitant]
     Active Substance: PANTOPRAZOLE
     Indication: Gastrooesophageal reflux disease
     Route: 048
     Dates: start: 20240329, end: 202404
  24. PANTOPRAZOLE [Concomitant]
     Active Substance: PANTOPRAZOLE
     Indication: Gastrooesophageal reflux disease
     Route: 048
     Dates: start: 202404

REACTIONS (2)
  - Pancytopenia [Recovered/Resolved]
  - Neurogenic shock [Recovered/Resolved]

NARRATIVE: CASE EVENT DATE: 20240601
